FAERS Safety Report 19704005 (Version 1)
Quarter: 2021Q3

REPORT INFORMATION
  Report Type: Spontaneous
  Country: TW (occurrence: TW)
  Receive Date: 20210816
  Receipt Date: 20210816
  Transmission Date: 20211014
  Serious: Yes (Life-Threatening, Hospitalization, Other)
  Sender: FDA-Public Use
  Company Number: TW-AMGEN-TWNSP2021125039

PATIENT
  Age: 64 Year
  Sex: Male

DRUGS (3)
  1. PLAQUENIL [Concomitant]
     Active Substance: HYDROXYCHLOROQUINE SULFATE
     Dosage: 1 DF
  2. METHOTREXATE. [Concomitant]
     Active Substance: METHOTREXATE
     Dosage: 4 DF
     Dates: end: 202107
  3. ENBREL [Suspect]
     Active Substance: ETANERCEPT
     Indication: RHEUMATOID ARTHRITIS
     Dosage: 25 MG, BIW
     Route: 058
     Dates: start: 20151029, end: 202107

REACTIONS (1)
  - Lymphoma [Not Recovered/Not Resolved]

NARRATIVE: CASE EVENT DATE: 202107
